FAERS Safety Report 19857625 (Version 4)
Quarter: 2023Q1

REPORT INFORMATION
  Report Type: Spontaneous
  Country: GB (occurrence: GB)
  Receive Date: 20210920
  Receipt Date: 20230331
  Transmission Date: 20230418
  Serious: Yes (Disabling, Other)
  Sender: FDA-Public Use
  Company Number: None

PATIENT
  Age: 29 Year
  Sex: Female
  Weight: 48 kg

DRUGS (3)
  1. MOMETASONE FUROATE [Suspect]
     Active Substance: MOMETASONE FUROATE
     Indication: Eczema
     Dosage: UNK
     Route: 061
     Dates: start: 20210211, end: 20210409
  2. EUMOVATE [Suspect]
     Active Substance: CLOBETASONE BUTYRATE
     Indication: Eczema
     Dosage: 1 DF, QD (APPLIED TO NECK, CHEST AND ARMS)
     Route: 061
     Dates: start: 20210118, end: 20210205
  3. HYDROCORTISONE [Suspect]
     Active Substance: HYDROCORTISONE
     Indication: Eczema
     Dosage: 1 DF, QD
     Route: 061
     Dates: start: 20210118, end: 20210204

REACTIONS (5)
  - Topical steroid withdrawal reaction [Not Recovered/Not Resolved]
  - Inappropriate schedule of product discontinuation [Unknown]
  - Insomnia [Unknown]
  - Depression [Unknown]
  - Temperature regulation disorder [Unknown]

NARRATIVE: CASE EVENT DATE: 20210409
